FAERS Safety Report 13497667 (Version 3)
Quarter: 2018Q2

REPORT INFORMATION
  Report Type: Spontaneous
  Country: SK (occurrence: SK)
  Receive Date: 20170428
  Receipt Date: 20180430
  Transmission Date: 20180711
  Serious: Yes (Hospitalization, Disabling, Other)
  Sender: FDA-Public Use
  Company Number: SK-MYLANLABS-2017M1025831

PATIENT
  Age: 66 Year
  Sex: Female
  Weight: 71 kg

DRUGS (2)
  1. LIPANTHYL 145 [Suspect]
     Active Substance: FENOFIBRATE
     Indication: DYSLIPIDAEMIA
     Dosage: 145 MG, QD
     Route: 048
     Dates: start: 20141105, end: 20150203
  2. FLAVOBION [Concomitant]
     Indication: LIVER DISORDER
     Dosage: 2 DF, QD
     Route: 048
     Dates: start: 20141105, end: 20150203

REACTIONS (3)
  - Myalgia [Not Recovered/Not Resolved]
  - Pain in extremity [Not Recovered/Not Resolved]
  - Dermatomyositis [Not Recovered/Not Resolved]

NARRATIVE: CASE EVENT DATE: 20150203
